APPROVED DRUG PRODUCT: SULFACETAMIDE SODIUM AND PREDNISOLONE SODIUM PHOSPHATE
Active Ingredient: PREDNISOLONE SODIUM PHOSPHATE; SULFACETAMIDE SODIUM
Strength: EQ 0.23% PHOSPHATE;10%
Dosage Form/Route: SOLUTION/DROPS;OPHTHALMIC
Application: A074449 | Product #001
Applicant: BAUSCH AND LOMB INC
Approved: Dec 29, 1995 | RLD: No | RS: Yes | Type: RX